FAERS Safety Report 13835549 (Version 1)
Quarter: 2017Q3

REPORT INFORMATION
  Report Type: Report from Study
  Country: None (occurrence: DE)
  Receive Date: 20170804
  Receipt Date: 20170804
  Transmission Date: 20171127
  Serious: Yes (Hospitalization)
  Sender: FDA-Public Use
  Company Number: DE-ABBVIE-17K-062-2061090-00

PATIENT
  Sex: Male

DRUGS (2)
  1. COMTESS [Concomitant]
     Active Substance: ENTACAPONE
     Indication: PRODUCT USED FOR UNKNOWN INDICATION
  2. DUODOPA [Suspect]
     Active Substance: CARBIDOPA\LEVODOPA
     Indication: PARKINSON^S DISEASE
     Dosage: MD 7.5 ML / CRD 4.1 ML/H / CRN 1.5 ML/H / ED 2.0 ML
     Route: 050
     Dates: start: 20090120

REACTIONS (2)
  - Gait disturbance [Recovered/Resolved]
  - Mobility decreased [Recovered/Resolved]
